FAERS Safety Report 10876603 (Version 1)
Quarter: 2015Q1

REPORT INFORMATION
  Report Type: Spontaneous
  Country: ES (occurrence: ES)
  Receive Date: 20150301
  Receipt Date: 20150301
  Transmission Date: 20150721
  Serious: Yes (Hospitalization)
  Sender: FDA-Public Use
  Company Number: PHHY2015ES023650

PATIENT
  Age: 69 Year
  Sex: Female

DRUGS (3)
  1. RIBAVIRIN. [Suspect]
     Active Substance: RIBAVIRIN
     Indication: CHRONIC HEPATITIS C
     Dosage: 1000 OT, UNK
     Route: 065
  2. TELAPREVIR [Suspect]
     Active Substance: TELAPREVIR
     Indication: CHRONIC HEPATITIS C
     Route: 065
     Dates: start: 201210
  3. PEGINTERFERON ALFA-2A [Suspect]
     Active Substance: PEGINTERFERON ALFA-2A
     Indication: CHRONIC HEPATITIS C
     Route: 065
     Dates: start: 201210

REACTIONS (16)
  - Oedema [Recovered/Resolved]
  - Dermatitis [Recovered/Resolved]
  - Parotid gland enlargement [Recovered/Resolved]
  - Ascites [Recovered/Resolved]
  - Haemoglobin decreased [Recovered/Resolved]
  - Pyrexia [Recovered/Resolved]
  - General physical health deterioration [Recovered/Resolved]
  - Tachycardia [Recovered/Resolved]
  - Mouth ulceration [Recovered/Resolved]
  - Pleural effusion [Recovered/Resolved]
  - Depressed level of consciousness [Recovered/Resolved]
  - Dyspnoea [Recovered/Resolved]
  - Blood albumin decreased [Recovered/Resolved]
  - Parotitis [Recovered/Resolved]
  - Cellulitis [Recovered/Resolved]
  - Haematocrit decreased [Recovered/Resolved]
